FAERS Safety Report 5853560-8 (Version None)
Quarter: 2008Q3

REPORT INFORMATION
  Report Type: 
  Country: None (occurrence: None)
  Receive Date: 20080822
  Receipt Date: 20080812
  Transmission Date: 20090109
  Serious: Yes (Death)
  Sender: FDA-Public Use
  Company Number: US-JNJFOC-20080803665

PATIENT
  Age: 10 Month
  Sex: Male

DRUGS (2)
  1. DEXTROMETHORPHAN HBR [Suspect]
     Indication: NASOPHARYNGITIS
  2. DEXTROMETHORPHAN HBR [Suspect]
     Indication: COUGH

REACTIONS (1)
  - DEATH [None]
